FAERS Safety Report 9221460 (Version 1)
Quarter: 2013Q2

REPORT INFORMATION
  Report Type: Spontaneous
  Country: US (occurrence: US)
  Receive Date: 20130410
  Receipt Date: 20130410
  Transmission Date: 20140414
  Serious: No
  Sender: FDA-Public Use
  Company Number: US-009507513-1304USA002263

PATIENT
  Age: 47 Year
  Sex: Male

DRUGS (2)
  1. JANUMET [Suspect]
     Indication: TYPE 2 DIABETES MELLITUS
     Dosage: 100/500 MG, BID
     Route: 048
     Dates: start: 201208, end: 201210
  2. VITAMINS (UNSPECIFIED) [Concomitant]

REACTIONS (4)
  - Arthralgia [Recovering/Resolving]
  - Weight control [Recovering/Resolving]
  - Medical diet [Recovering/Resolving]
  - Therapeutic response unexpected [Unknown]
